FAERS Safety Report 4874160-2 (Version None)
Quarter: 2006Q1

REPORT INFORMATION
  Report Type: 
  Country: None (occurrence: None)
  Receive Date: 20060106
  Receipt Date: 20051228
  Transmission Date: 20060701
  Serious: Yes (Hospitalization)
  Sender: FDA-Public Use
  Company Number: JP-JPN-A20053229

PATIENT
  Age: 57 Year
  Sex: Male

DRUGS (2)
  1. ALKERAN [Suspect]
     Indication: STEM CELL TRANSPLANT
     Dosage: 60MG PER DAY
     Route: 042
     Dates: start: 20051217, end: 20051218
  2. FLUDARA [Concomitant]
     Route: 042

REACTIONS (1)
  - CYSTITIS HAEMORRHAGIC [None]
